FAERS Safety Report 4752600-7 (Version None)
Quarter: 2005Q3

REPORT INFORMATION
  Report Type: 
  Country: None (occurrence: None)
  Receive Date: 20050825
  Receipt Date: 20050819
  Transmission Date: 20060218
  Serious: Yes (Other)
  Sender: FDA-Public Use
  Company Number: PHEH2005US09290

PATIENT
  Age: 22 Year
  Sex: Female

DRUGS (4)
  1. ZELNORM [Suspect]
     Indication: REFLUX OESOPHAGITIS
     Dosage: 3 MG, BID
     Route: 048
     Dates: start: 20050301
  2. ZELNORM [Suspect]
     Dosage: 3 MG, QD
     Route: 048
  3. ALLEGRA [Concomitant]
  4. CONTRACEPTIVES UNS [Concomitant]

REACTIONS (2)
  - DIARRHOEA [None]
  - DIZZINESS [None]
